FAERS Safety Report 10241948 (Version 1)
Quarter: 2014Q1

REPORT INFORMATION
  Report Type: Spontaneous
  Country: US (occurrence: None)
  Receive Date: 20140306
  Receipt Date: 20140306
  Transmission Date: 20141002
  Serious: Yes (Hospitalization)
  Sender: FDA-Public Use
  Company Number: 163-21880-13112884

PATIENT
  Age: 87 Year
  Sex: Male
  Weight: 81.6 kg

DRUGS (1)
  1. REVLIMID [Suspect]
     Indication: PLASMA CELL MYELOMA
     Dosage: SEP-2013 - ON HOLD?25 MG, 14 IN 14 D, PO
     Route: 048
     Dates: start: 201309

REACTIONS (1)
  - Cardiac failure [None]
